FAERS Safety Report 4988530-5 (Version None)
Quarter: 2006Q2

REPORT INFORMATION
  Report Type: 
  Country: None (occurrence: None)
  Receive Date: 20060426
  Receipt Date: 20060412
  Transmission Date: 20061013
  Serious: Yes (Death, Life-Threatening)
  Sender: FDA-Public Use
  Company Number: 2006JP001047

PATIENT
  Age: 70 Year
  Sex: Male

DRUGS (7)
  1. FUNGUARD (MICAFUNGIN) INJECTION [Suspect]
     Dosage: 300 MG, D, IV NOS
     Route: 042
     Dates: start: 20060403, end: 20060405
  2. MAXIPIME [Suspect]
     Dosage: 2 G, D, IV NOS
     Route: 042
     Dates: start: 20060403, end: 20060405
  3. BACTAR (SULFAMETHOXAZOLE, TRIMETHOPRIM) [Concomitant]
  4. PAZUCROSS (PAZUFLOXACIN) INJECTION [Concomitant]
  5. VFEND [Concomitant]
  6. MEROPEN (MEROPENEM) [Concomitant]
  7. LENDORM [Concomitant]

REACTIONS (4)
  - ALANINE AMINOTRANSFERASE INCREASED [None]
  - ASPARTATE AMINOTRANSFERASE INCREASED [None]
  - BLOOD BILIRUBIN INCREASED [None]
  - LIVER DISORDER [None]
